FAERS Safety Report 6435377-9 (Version None)
Quarter: 2009Q4

REPORT INFORMATION
  Report Type: 
  Country: None (occurrence: None)
  Receive Date: 20091106
  Receipt Date: 20091103
  Transmission Date: 20100525
  Serious: Yes (Hospitalization)
  Sender: FDA-Public Use
  Company Number: 8033620

PATIENT
  Age: 55 Year
  Sex: Male
  Weight: 108.8 kg

DRUGS (7)
  1. CIMZIA [Suspect]
     Indication: CROHN'S DISEASE
     Dosage: 400 MG /M; SC
     Route: 058
     Dates: start: 20071016
  2. PAXIL [Concomitant]
  3. LORTAB [Concomitant]
  4. PROTONIX [Concomitant]
  5. ZOCOR [Concomitant]
  6. IMURAN [Concomitant]
  7. LOMOTIL [Concomitant]

REACTIONS (2)
  - HYPERHIDROSIS [None]
  - RECTAL ABSCESS [None]
